FAERS Safety Report 8475087-X (Version None)
Quarter: 2012Q2

REPORT INFORMATION
  Report Type: 
  Country: None (occurrence: None)
  Receive Date: 20120628
  Receipt Date: 20120622
  Transmission Date: 20120825
  Serious: Yes (Other)
  Sender: FDA-Public Use
  Company Number: US-BAYER-200940881NA

PATIENT
  Age: 69 Year
  Sex: Male
  Weight: 68 kg

DRUGS (29)
  1. ZETIA [Concomitant]
     Dosage: 10 MG DAILY
     Route: 048
  2. PLAVIX [Concomitant]
     Dosage: 75 MG DAILY
     Route: 048
  3. MILRINONE LACTATE [Concomitant]
     Dosage: UNK
     Dates: start: 20041203
  4. PROPRANOLOL [Concomitant]
     Dosage: UNK
     Dates: start: 20041203, end: 20041203
  5. DIOVAN [Concomitant]
     Dosage: 160/12.5
     Route: 048
  6. MIDAZOLAM [Concomitant]
     Dosage: UNK
     Dates: start: 20041203, end: 20041203
  7. METOPROLOL TARTRATE [Concomitant]
     Dosage: 50 MG TWICE DAILY
     Route: 048
  8. ZOCOR [Concomitant]
     Dosage: 40 MG DAILY
  9. ACTOS [Concomitant]
     Dosage: 30 MG DAILY
     Route: 048
  10. PROTAMINE SULFATE [Concomitant]
     Dosage: UNK
     Route: 042
     Dates: start: 20041203
  11. HEPARIN [Concomitant]
     Route: 042
  12. LASIX [Concomitant]
     Dosage: 40 MG TWICE DAILY
     Route: 048
  13. INSULIN [Concomitant]
     Dosage: 35 UNITS AM, 15 UNITS PM
     Route: 048
  14. CARDIZEM LA [Concomitant]
  15. FLOMAX [Concomitant]
     Dosage: 0.4MG
  16. VANCOMYCIN [Concomitant]
     Dosage: 100 MG
     Dates: start: 20041203, end: 20041203
  17. TRASYLOL [Suspect]
     Indication: CORONARY ARTERY BYPASS
     Dosage: 600ML
     Route: 042
     Dates: start: 20041203, end: 20041203
  18. LISINOPRIL [Concomitant]
     Dosage: 40 MG DAILY
     Route: 048
  19. MUCOMYST [Concomitant]
     Dosage: 600 MG, TID
     Dates: start: 20041118
  20. FLEXERIL [Concomitant]
     Dosage: 10 MG, TID
     Route: 048
     Dates: start: 20041127
  21. FAMOTIDINE [Concomitant]
     Dosage: UNK
     Dates: start: 20041203, end: 20041203
  22. ASPIRIN [Concomitant]
     Dosage: 325 MG, QD
     Route: 048
  23. NITROGLYCERIN [Concomitant]
     Dosage: UNK
     Route: 042
     Dates: start: 20041203
  24. PROTONIX [Concomitant]
     Dosage: 40 MG, QD
     Route: 048
     Dates: start: 20041129
  25. LEVAQUIN [Concomitant]
     Dosage: 500 MG, QD
     Route: 042
     Dates: start: 20041129
  26. CATAPRES [Concomitant]
     Dosage: 0.25 MG, HS
     Route: 048
     Dates: start: 20041127
  27. PANCURONIUM BROMIDE [Concomitant]
     Dosage: UNK
     Dates: start: 20041203, end: 20041203
  28. IMDUR [Concomitant]
     Dosage: 60 MG, QD
  29. NORVASC [Concomitant]
     Dosage: 5 MG, QD
     Route: 048
     Dates: start: 20041129

REACTIONS (12)
  - DISABILITY [None]
  - MULTI-ORGAN FAILURE [None]
  - RENAL FAILURE [None]
  - UNEVALUABLE EVENT [None]
  - DEPRESSION [None]
  - RENAL INJURY [None]
  - INJURY [None]
  - ANXIETY [None]
  - PAIN [None]
  - ANHEDONIA [None]
  - EMOTIONAL DISORDER [None]
  - FEAR [None]
